FAERS Safety Report 4595853-0 (Version None)
Quarter: 2005Q1

REPORT INFORMATION
  Report Type: 
  Country: None (occurrence: None)
  Receive Date: 20050224
  Receipt Date: 20050224
  Transmission Date: 20050727
  Serious: Yes (Other)
  Sender: FDA-Public Use
  Company Number: None

PATIENT
  Age: 57 Year
  Sex: Female
  Weight: 70.3075 kg

DRUGS (10)
  1. CYMBALTA [Suspect]
     Indication: CYSTITIS INTERSTITIAL
     Dosage: ONE TABLET  ONCE DAILY ORAL
     Route: 048
     Dates: start: 20050210, end: 20050211
  2. CYMBALTA [Suspect]
     Indication: DEPRESSION
     Dosage: ONE TABLET  ONCE DAILY ORAL
     Route: 048
     Dates: start: 20050210, end: 20050211
  3. NEURONTIN [Concomitant]
  4. TOPAMAX [Concomitant]
  5. DILTIAZEM NITROGLYCERIN PATCH [Concomitant]
  6. LIPITOR [Concomitant]
  7. FOLIC ACID [Concomitant]
  8. ASPIRIN [Concomitant]
  9. MS CONTIN [Concomitant]
  10. VICODEN [Concomitant]

REACTIONS (5)
  - AGITATION [None]
  - CONDITION AGGRAVATED [None]
  - EMOTIONAL DISTRESS [None]
  - INSOMNIA [None]
  - SUICIDAL IDEATION [None]
